FAERS Safety Report 9346525 (Version 1)
Quarter: 2013Q2

REPORT INFORMATION
  Report Type: Report from Study
  Country: NL (occurrence: NL)
  Receive Date: 20130613
  Receipt Date: 20130613
  Transmission Date: 20140414
  Serious: Yes (Hospitalization)
  Sender: FDA-Public Use
  Company Number: NL-CELGENEUS-114-21880-13060506

PATIENT
  Age: 66 Year
  Sex: Male
  Weight: 80 kg

DRUGS (12)
  1. REVLIMID [Suspect]
     Indication: ACUTE MYELOID LEUKAEMIA
     Route: 048
     Dates: start: 20130430
  2. DAUNOMYCIN [Suspect]
     Indication: ACUTE MYELOID LEUKAEMIA
     Route: 041
     Dates: start: 20130430
  3. CYTARABINE [Suspect]
     Indication: ACUTE MYELOID LEUKAEMIA
     Route: 041
     Dates: start: 20130430
  4. GRANISETRON [Concomitant]
     Indication: PROPHYLAXIS
     Dosage: 2 MILLIGRAM
     Route: 041
     Dates: start: 20130430
  5. METOCLOPRAMIDE [Concomitant]
     Indication: NAUSEA
     Dosage: 3.3333 MILLIGRAM
     Route: 041
     Dates: start: 20130430
  6. POLYMYXIN NEOMYCIN [Concomitant]
     Indication: PROPHYLAXIS
     Route: 048
     Dates: start: 20130429
  7. CIPROFLOXACIN [Concomitant]
     Indication: PROPHYLAXIS
     Dosage: 1000 MILLIGRAM
     Route: 048
     Dates: start: 20130429
  8. AMFOB SUSP [Concomitant]
     Indication: PROPHYLAXIS
     Dosage: 800 MILLIGRAM
     Route: 048
     Dates: start: 20130429
  9. BENZYLPENICILLINE [Concomitant]
     Indication: PRODUCT USED FOR UNKNOWN INDICATION
     Route: 041
     Dates: start: 20130503
  10. ITRACONAZOL [Concomitant]
     Indication: PRODUCT USED FOR UNKNOWN INDICATION
     Dosage: 600 MILLIGRAM
     Route: 048
     Dates: start: 20130507
  11. ACICLOVIR [Concomitant]
     Indication: PRODUCT USED FOR UNKNOWN INDICATION
     Dosage: 1050 MILLIGRAM
     Route: 041
     Dates: start: 20130510
  12. TYLOMEDION [Concomitant]
     Indication: PRODUCT USED FOR UNKNOWN INDICATION
     Dosage: 1.6667 MILLIGRAM
     Route: 048
     Dates: start: 20130420

REACTIONS (1)
  - Histiocytosis haematophagic [Not Recovered/Not Resolved]
